FAERS Safety Report 25955034 (Version 1)
Quarter: 2025Q4

REPORT INFORMATION
  Report Type: Spontaneous
  Country: CA (occurrence: CA)
  Receive Date: 20251024
  Receipt Date: 20251024
  Transmission Date: 20260118
  Serious: Yes (Other)
  Sender: AUROBINDO
  Company Number: CA-AUROBINDO-AUR-APL-2025-052942

PATIENT
  Age: 57 Year
  Sex: Female

DRUGS (2)
  1. TENOFOVIR [Suspect]
     Active Substance: TENOFOVIR
     Indication: HIV infection
     Dosage: 300 MILLIGRAM, ONCE A DAY
     Route: 065
  2. ABACAVIR SULFATE\DOLUTEGRAVIR SODIUM\LAMIVUDINE [Suspect]
     Active Substance: ABACAVIR SULFATE\DOLUTEGRAVIR SODIUM\LAMIVUDINE
     Indication: HIV infection
     Dosage: 300 MILLIGRAM, ONCE A DAY
     Route: 065

REACTIONS (1)
  - Diabetes mellitus [Not Recovered/Not Resolved]
